FAERS Safety Report 5270433-2 (Version None)
Quarter: 2007Q1

REPORT INFORMATION
  Report Type: 
  Country: None (occurrence: None)
  Receive Date: 20070320
  Receipt Date: 20070308
  Transmission Date: 20070707
  Serious: Yes (Hospitalization)
  Sender: FDA-Public Use
  Company Number: US-PFIZER INC-2007019110

PATIENT
  Sex: Male
  Weight: 122.5 kg

DRUGS (13)
  1. CELEBREX [Suspect]
     Indication: PAIN
     Dates: start: 20011201, end: 20050101
  2. BEXTRA [Suspect]
     Indication: PAIN
     Dates: start: 20020516, end: 20021001
  3. BEXTRA [Suspect]
     Dates: start: 20041018, end: 20041117
  4. PREVACID [Concomitant]
  5. ACETYLSALICYLIC ACID SRT [Concomitant]
  6. LIPITOR [Concomitant]
  7. TOPROL-XL [Concomitant]
  8. IMDUR [Concomitant]
  9. VIOXX [Concomitant]
  10. CLARITIN [Concomitant]
  11. ALBUTEROL [Concomitant]
  12. ALTACE [Concomitant]
  13. LASIX [Concomitant]

REACTIONS (2)
  - CEREBROVASCULAR ACCIDENT [None]
  - MYOCARDIAL INFARCTION [None]
